FAERS Safety Report 6814551-3 (Version None)
Quarter: 2010Q2

REPORT INFORMATION
  Report Type: 
  Country: None (occurrence: None)
  Receive Date: 20100629
  Receipt Date: 20100326
  Transmission Date: 20101027
  Serious: Yes (Disabling)
  Sender: FDA-Public Use
  Company Number: US-1181278

PATIENT
  Sex: Female
  Weight: 70.7611 kg

DRUGS (3)
  1. VIGAMOX [Suspect]
     Indication: PROPHYLAXIS
     Dosage: TID OPHTHALMIC
     Route: 047
     Dates: start: 20100306
  2. NEVANAC [Suspect]
     Indication: PROPHYLAXIS
     Dosage: TID OPHTHALMIC
     Route: 047
     Dates: start: 20100306
  3. DIGOXIN [Concomitant]

REACTIONS (4)
  - EYE IRRITATION [None]
  - EYE PAIN [None]
  - SENSATION OF FOREIGN BODY [None]
  - VISUAL ACUITY REDUCED [None]
